FAERS Safety Report 12278717 (Version 7)
Quarter: 2017Q2

REPORT INFORMATION
  Report Type: Report from Study
  Country: BR (occurrence: BR)
  Receive Date: 20160418
  Receipt Date: 20170620
  Transmission Date: 20170830
  Serious: Yes (Hospitalization, Other)
  Sender: FDA-Public Use
  Company Number: PHHY2016BR050862

PATIENT
  Sex: Male
  Weight: 71 kg

DRUGS (2)
  1. SANDOSTATIN LAR DEPOT [Suspect]
     Active Substance: OCTREOTIDE ACETATE
     Indication: HEPATIC NEOPLASM
  2. SANDOSTATIN LAR DEPOT [Suspect]
     Active Substance: OCTREOTIDE ACETATE
     Indication: NEUROENDOCRINE TUMOUR
     Dosage: 30 MG, QMO (EVERY 28 DAYS)
     Route: 030
     Dates: start: 2015

REACTIONS (9)
  - Diarrhoea [Unknown]
  - Product use in unapproved indication [Unknown]
  - Palpitations [Unknown]
  - Generalised erythema [Recovering/Resolving]
  - Inappropriate schedule of drug administration [Unknown]
  - Arrhythmia [Recovering/Resolving]
  - Feeling hot [Unknown]
  - Fatigue [Recovering/Resolving]
  - Asthenia [Unknown]

NARRATIVE: CASE EVENT DATE: 2015
